FAERS Safety Report 6302280-4 (Version None)
Quarter: 2009Q3

REPORT INFORMATION
  Report Type: 
  Country: None (occurrence: None)
  Receive Date: 20090810
  Receipt Date: 20090730
  Transmission Date: 20100115
  Serious: Yes (Other)
  Sender: FDA-Public Use
  Company Number: US-PFIZER INC-2009248611

PATIENT
  Sex: Female
  Weight: 117.1 kg

DRUGS (9)
  1. LYRICA [Suspect]
     Indication: FIBROMYALGIA
     Dosage: 150 MG, 2X/DAY
     Route: 048
     Dates: start: 20090630, end: 20090701
  2. NEURONTIN [Suspect]
     Indication: FIBROMYALGIA
     Dosage: UNK
     Route: 048
     Dates: start: 20030101, end: 20090601
  3. VALIUM [Suspect]
     Dosage: UNK
  4. LEVOXYL [Concomitant]
     Dosage: UNK
  5. PROTONIX [Concomitant]
     Dosage: UNK
  6. CALCITRIOL [Concomitant]
     Dosage: UNK
  7. DEXAMETHASONE [Concomitant]
     Dosage: UNK
  8. PRAVASTATIN [Concomitant]
     Dosage: UNK
  9. NORCO [Concomitant]
     Dosage: UNK

REACTIONS (5)
  - BEDRIDDEN [None]
  - COUGH [None]
  - FEELING ABNORMAL [None]
  - HYPERSOMNIA [None]
  - NAUSEA [None]
